FAERS Safety Report 25177697 (Version 1)
Quarter: 2025Q2

REPORT INFORMATION
  Report Type: Spontaneous
  Country: GB (occurrence: GB)
  Receive Date: 20250409
  Receipt Date: 20250409
  Transmission Date: 20250716
  Serious: Yes (Hospitalization)
  Sender: MYLAN
  Company Number: GB-MYLANLABS-2025M1029461

PATIENT
  Sex: Male

DRUGS (2)
  1. CLOZARIL [Suspect]
     Active Substance: CLOZAPINE
     Indication: Schizophrenia
     Dosage: 150 MILLIGRAM, PM (ONCE AT NIGHT)
     Dates: start: 20240816
  2. CLOZARIL [Suspect]
     Active Substance: CLOZAPINE

REACTIONS (3)
  - Mental impairment [Unknown]
  - Schizophrenia [Unknown]
  - Intentional product use issue [Unknown]
